FAERS Safety Report 8205666 (Version 5)
Quarter: 2014Q2

REPORT INFORMATION
  Report Type: Spontaneous
  Country: JP (occurrence: JP)
  Receive Date: 20111028
  Receipt Date: 20140620
  Transmission Date: 20141212
  Serious: Yes (Life-Threatening, Other)
  Sender: FDA-Public Use
  Company Number: JP-ASTELLAS-2011JP007577

PATIENT
  Age: 59 Year
  Sex: Female
  Weight: 37 kg

DRUGS (19)
  1. PROGRAF [Suspect]
     Indication: PROPHYLAXIS AGAINST GRAFT VERSUS HOST DISEASE
     Dosage: 0.4 MG, ONCE DAILY
     Route: 041
     Dates: start: 20100927
  2. PROGRAF [Suspect]
     Indication: MYELODYSPLASTIC SYNDROME
     Dosage: UNK, UNKNOWN FREQ.
     Route: 041
  3. PROGRAF [Suspect]
     Dosage: UNK, UNKNOWN FREQ.
     Route: 041
     Dates: end: 201107
  4. SOLU MEDROL [Suspect]
     Indication: ACUTE GRAFT VERSUS HOST DISEASE
     Route: 041
     Dates: start: 20100318
  5. SOLU MEDROL [Suspect]
     Route: 041
     Dates: start: 20110326, end: 20110427
  6. MYCOSYST [Concomitant]
     Indication: CORD BLOOD TRANSPLANT THERAPY
     Route: 048
     Dates: start: 20100920, end: 20110427
  7. CRAVIT [Concomitant]
     Indication: CORD BLOOD TRANSPLANT THERAPY
     Route: 048
     Dates: start: 201103, end: 20110427
  8. VALTREX [Concomitant]
     Indication: ORAL HERPES
     Route: 048
     Dates: start: 20110401, end: 20110427
  9. MYCOPHENOLATE MOFETIL [Concomitant]
     Indication: ACUTE GRAFT VERSUS HOST DISEASE
     Route: 065
  10. URSO [Concomitant]
     Indication: CORD BLOOD TRANSPLANT THERAPY
     Route: 048
     Dates: start: 20100920, end: 20110427
  11. OMEPRAL [Concomitant]
     Indication: ACUTE GRAFT VERSUS HOST DISEASE
     Route: 048
     Dates: start: 201103, end: 20110427
  12. FLUDARABINE [Concomitant]
     Indication: BONE MARROW CONDITIONING REGIMEN
     Route: 065
  13. MELPHALAN [Concomitant]
     Indication: BONE MARROW CONDITIONING REGIMEN
     Route: 065
  14. METHYLPREDNISOLONE [Concomitant]
     Indication: ACUTE GRAFT VERSUS HOST DISEASE
     Route: 065
  15. METHYLPREDNISOLONE [Concomitant]
     Route: 065
  16. METHYLPREDNISOLONE [Concomitant]
     Dosage: UNK, UNKNOWN FREQ.
     Route: 065
  17. METHYLPREDNISOLONE [Concomitant]
     Dosage: 0.5 MG/KG, ONCE DAILY
     Route: 065
  18. SULFAMETHOXAZOLE AND TRIMETHOPRIM [Concomitant]
     Indication: PRODUCT USED FOR UNKNOWN INDICATION
     Route: 048
  19. THYMOGLOBULIN [Concomitant]
     Indication: PRODUCT USED FOR UNKNOWN INDICATION
     Route: 065

REACTIONS (6)
  - Cerebral toxoplasmosis [Recovering/Resolving]
  - Oral herpes [Recovered/Resolved]
  - Renal tubular disorder [Recovered/Resolved]
  - Acute graft versus host disease [Recovering/Resolving]
  - Acute graft versus host disease [Unknown]
  - Drug ineffective [Unknown]
